FAERS Safety Report 6875866-6 (Version None)
Quarter: 2010Q3

REPORT INFORMATION
  Report Type: 
  Country: None (occurrence: None)
  Receive Date: 20100727
  Receipt Date: 20070716
  Transmission Date: 20110219
  Serious: Yes (Hospitalization, Disabling, Other)
  Sender: FDA-Public Use
  Company Number: US-PFIZER INC-2006147217

PATIENT
  Sex: Female
  Weight: 62.1 kg

DRUGS (6)
  1. CELEBREX [Suspect]
     Indication: OSTEOARTHRITIS
     Route: 048
     Dates: start: 19990401, end: 20000312
  2. CELEBREX [Suspect]
     Indication: NECK PAIN
  3. CELEBREX [Suspect]
     Indication: BACK PAIN
  4. VIOXX [Suspect]
     Indication: OSTEOARTHRITIS
     Route: 048
     Dates: start: 20000321
  5. VIOXX [Suspect]
     Indication: NECK PAIN
  6. VIOXX [Suspect]
     Indication: BACK PAIN

REACTIONS (2)
  - CORONARY ARTERY DISEASE [None]
  - MYOCARDIAL INFARCTION [None]
